FAERS Safety Report 7635116-X (Version None)
Quarter: 2011Q3

REPORT INFORMATION
  Report Type: 
  Country: None (occurrence: None)
  Receive Date: 20110718
  Receipt Date: 20110708
  Transmission Date: 20111222
  Serious: Yes (Life-Threatening, Hospitalization)
  Sender: FDA-Public Use
  Company Number: WAES 1103USA00984

PATIENT
  Age: 79 Year
  Sex: Male
  Weight: 77.1115 kg

DRUGS (23)
  1. COLLAGENASE CLOSTRIDIUM HISTOLY [Concomitant]
  2. ENOXAPARIN SODIUM [Concomitant]
  3. DECADRON [Concomitant]
  4. AVASTIN [Suspect]
     Indication: GLIOBLASTOMA MULTIFORME
     Dosage: 773 MG/2WK/25DY/IV
     Route: 042
     Dates: start: 20110201, end: 20110203
  5. AVASTIN [Suspect]
     Indication: GLIOBLASTOMA MULTIFORME
     Dosage: 773 MG/2WK/25DY/IV
     Route: 042
     Dates: start: 20110210, end: 20110225
  6. LOVENOX [Concomitant]
  7. DEXAMETHASONE [Concomitant]
  8. ANDRODERM [Concomitant]
  9. SERTRALINE HYDROCHLORIDE [Concomitant]
  10. TEMODAR [Suspect]
     Indication: GLIOBLASTOMA MULTIFORME
     Dosage: 100 MG/DAILY/PO
     Route: 048
     Dates: start: 20110201, end: 20110203
  11. TEMODAR [Suspect]
     Indication: GLIOBLASTOMA MULTIFORME
     Dosage: 100 MG/DAILY/PO
     Route: 048
     Dates: start: 20110210, end: 20110225
  12. ULTRAM [Concomitant]
  13. ACYCLOVIR [Concomitant]
  14. ASCORBIC ACID [Concomitant]
  15. HYDROCORTISONE [Concomitant]
  16. CORTEF [Concomitant]
  17. ZOFRAN [Concomitant]
  18. VITAMINS (UNSPECIFIED) [Concomitant]
  19. ALBUTEROL SULFATE AUTOHALER [Concomitant]
  20. CAP VORINOSTAT UNK [Suspect]
     Indication: GLIOBLASTOMA
     Dosage: 400 MG/DAILY/PO
     Route: 048
     Dates: start: 20110201, end: 20110203
  21. CAP VORINOSTAT UNK [Suspect]
     Indication: GLIOBLASTOMA
     Dosage: 400 MG/DAILY/PO
     Route: 048
     Dates: start: 20110210, end: 20110216
  22. KEPPRA [Concomitant]
  23. KLOR-CON [Concomitant]

REACTIONS (30)
  - BLOOD PRESSURE SYSTOLIC INCREASED [None]
  - URINARY TRACT INFECTION [None]
  - LOSS OF CONSCIOUSNESS [None]
  - SUBDURAL HAEMATOMA [None]
  - DEEP VEIN THROMBOSIS [None]
  - BLOOD CALCIUM DECREASED [None]
  - APNOEA [None]
  - HYPOKALAEMIA [None]
  - ATELECTASIS [None]
  - BLOOD GLUCOSE INCREASED [None]
  - HAEMOGLOBIN DECREASED [None]
  - WOUND [None]
  - ATRIAL FIBRILLATION [None]
  - GAIT DISTURBANCE [None]
  - CLOSTRIDIUM TEST POSITIVE [None]
  - DIARRHOEA [None]
  - GRAND MAL CONVULSION [None]
  - BLOOD CHLORIDE INCREASED [None]
  - HYPOXIA [None]
  - CONFUSIONAL STATE [None]
  - HYPOPHOSPHATAEMIA [None]
  - FATIGUE [None]
  - BLOOD ALBUMIN INCREASED [None]
  - BALANCE DISORDER [None]
  - FALL [None]
  - HEAD INJURY [None]
  - INFECTION [None]
  - PLATELET COUNT DECREASED [None]
  - LOBAR PNEUMONIA [None]
  - HAEMATOCRIT DECREASED [None]
